FAERS Safety Report 4476700-4 (Version None)
Quarter: 2004Q4

REPORT INFORMATION
  Report Type: 
  Country: None (occurrence: None)
  Receive Date: 20041015
  Receipt Date: 20041015
  Transmission Date: 20050328
  Serious: Yes (Life-Threatening, Hospitalization)
  Sender: FDA-Public Use
  Company Number: None

PATIENT
  Age: 75 Year
  Sex: Male

DRUGS (11)
  1. PREMARIN [Suspect]
     Indication: PROSTATE CANCER
     Dosage: 1.25 MG TID ORAL
     Route: 048
     Dates: start: 20040601, end: 20041010
  2. LUPRON [Concomitant]
  3. WARFARIN [Concomitant]
  4. LORAZEPAM [Concomitant]
  5. COMBIVENT [Concomitant]
  6. DOXAZOCIN [Concomitant]
  7. LISINOPRIL [Concomitant]
  8. ADVAIR DISKUS 100/50 [Concomitant]
  9. LIPITOR [Concomitant]
  10. ATIVAN [Concomitant]
  11. TYLENOL [Concomitant]

REACTIONS (2)
  - CEREBRAL INFARCTION [None]
  - CEREBROVASCULAR ACCIDENT [None]
